FAERS Safety Report 9725001 (Version 2)
Quarter: 2014Q1

REPORT INFORMATION
  Report Type: Spontaneous
  Country: US (occurrence: US)
  Receive Date: 20131203
  Receipt Date: 20140212
  Transmission Date: 20141002
  Serious: Yes (Hospitalization, Other)
  Sender: FDA-Public Use
  Company Number: US-JNJFOC-20131114637

PATIENT
  Age: 69 Year
  Sex: Male

DRUGS (1)
  1. ASPIRIN [Suspect]
     Indication: IMMUNE TOLERANCE INDUCTION
     Route: 065

REACTIONS (4)
  - Kounis syndrome [Recovered/Resolved]
  - Thrombosis [Recovered/Resolved]
  - Off label use [Unknown]
  - Anaphylactic reaction [Recovered/Resolved]
